FAERS Safety Report 7592923-X (Version None)
Quarter: 2011Q2

REPORT INFORMATION
  Report Type: 
  Country: None (occurrence: None)
  Receive Date: 20110628
  Receipt Date: 20110615
  Transmission Date: 20111010
  Serious: Yes (Death)
  Sender: FDA-Public Use
  Company Number: 2011MA007853

PATIENT
  Age: 80 Year
  Sex: Male

DRUGS (4)
  1. KEPPRA [Suspect]
     Indication: STATUS EPILEPTICUS
  2. VALPROIC ACID [Suspect]
     Indication: STATUS EPILEPTICUS
  3. BENZODIAZEPINE DERIVATIVES (BENZODIAZEPINE DERIVATIVES) [Suspect]
     Indication: STATUS EPILEPTICUS
  4. PHENYTOIN [Suspect]
     Indication: STATUS EPILEPTICUS

REACTIONS (2)
  - DRUG INEFFECTIVE [None]
  - STATUS EPILEPTICUS [None]
